FAERS Safety Report 9304957 (Version 1)
Quarter: 2013Q2

REPORT INFORMATION
  Report Type: Spontaneous
  Country: US (occurrence: None)
  Receive Date: 20130521
  Receipt Date: 20130521
  Transmission Date: 20140414
  Serious: Yes (Hospitalization)
  Sender: FDA-Public Use
  Company Number: 2013-0808

PATIENT
  Age: 69 Year
  Sex: Male

DRUGS (6)
  1. KYPROLIS (CARFILZOMIB) (INJECTION FOR INFUSION) (CARFILZOMIB) [Suspect]
     Indication: PLASMA CELL MYELOMA
     Dosage: 10.2857 MG (36 MG, 2 IN 1 WK), INTRAVENOUS
     Route: 042
     Dates: start: 20130424
  2. MOTRIN [Concomitant]
  3. ZOMETA [Concomitant]
  4. CALCIUM (CALCIUM) (CALCIUM) [Concomitant]
  5. VITAMIN B6 (PYRIDOXINE HYDROCHLORIDE) (PYRIDOXINE HYDROCHLORIDE) [Concomitant]
  6. PROBIOTIC (BIFIDOBACTERIUM INFANTIS) (BIFIDOBACTERIUM INFANTIS) [Concomitant]

REACTIONS (10)
  - Diarrhoea [None]
  - Blood sodium decreased [None]
  - Carbon dioxide decreased [None]
  - Hypophagia [None]
  - Dehydration [None]
  - Blood pressure systolic increased [None]
  - Swelling [None]
  - Nausea [None]
  - Renal failure acute [None]
  - Somnolence [None]
